FAERS Safety Report 26132633 (Version 1)
Quarter: 2025Q4

REPORT INFORMATION
  Report Type: Spontaneous
  Country: CN (occurrence: CN)
  Receive Date: 20251208
  Receipt Date: 20251208
  Transmission Date: 20260118
  Serious: Yes (Hospitalization)
  Sender: ELI LILLY AND COMPANY
  Company Number: CN-Merck Healthcare KGaA-2025061664

PATIENT
  Age: 77 Year
  Sex: Male
  Weight: 75 kg

DRUGS (2)
  1. ERBITUX [Suspect]
     Active Substance: CETUXIMAB
     Indication: Pharyngeal cancer
     Dosage: 0.67 G, OTHER
     Route: 041
     Dates: start: 20251022
  2. PACLITAXEL [Concomitant]
     Active Substance: PACLITAXEL
     Indication: Pharyngeal cancer
     Dosage: 400 MG, UNK
     Route: 042

REACTIONS (2)
  - White blood cell count decreased [Unknown]
  - Off label use [Unknown]

NARRATIVE: CASE EVENT DATE: 20251027
